FAERS Safety Report 14842258 (Version 2)
Quarter: 2018Q4

REPORT INFORMATION
  Report Type: Spontaneous
  Country: FR (occurrence: FR)
  Receive Date: 20180503
  Receipt Date: 20181127
  Transmission Date: 20190204
  Serious: Yes (Other)
  Sender: FDA-Public Use
  Company Number: FR-MERCK KGAA-2047104

PATIENT
  Age: 36 Year
  Sex: Female

DRUGS (1)
  1. EUTHYROX [Suspect]
     Active Substance: LEVOTHYROXINE SODIUM
     Indication: PRODUCT USED FOR UNKNOWN INDICATION
     Dates: start: 201704, end: 2017

REACTIONS (24)
  - Decreased activity [None]
  - Marital problem [None]
  - Insomnia [None]
  - General physical health deterioration [None]
  - Hypothyroidism [None]
  - Anxiety [None]
  - Social avoidant behaviour [None]
  - Decreased interest [None]
  - Arthralgia [None]
  - Depression [None]
  - Alopecia [None]
  - Suicidal ideation [None]
  - Asthenia [None]
  - Fatigue [None]
  - Nausea [None]
  - Headache [None]
  - Aggression [None]
  - Apathy [None]
  - Vertigo [None]
  - Weight increased [None]
  - Blood thyroid stimulating hormone increased [None]
  - Pain [None]
  - Hyperacusis [None]
  - Mood swings [None]

NARRATIVE: CASE EVENT DATE: 2017
